FAERS Safety Report 11717222 (Version 3)
Quarter: 2015Q4

REPORT INFORMATION
  Report Type: Spontaneous
  Country: US (occurrence: US)
  Receive Date: 20151104
  Receipt Date: 20151120
  Transmission Date: 20160304
  Serious: No
  Sender: FDA-Public Use
  Company Number: US-ELI_LILLY_AND_COMPANY-US201106001361

PATIENT
  Age: 69 Year
  Sex: Female

DRUGS (5)
  1. FORTEO [Suspect]
     Active Substance: TERIPARATIDE
     Indication: OSTEOPOROSIS
     Dosage: 20 UG, QD
     Route: 058
     Dates: start: 201101, end: 20110529
  2. FORTEO [Suspect]
     Active Substance: TERIPARATIDE
     Dosage: 20 UG, QD
     Route: 058
  3. FORTEO [Suspect]
     Active Substance: TERIPARATIDE
     Dosage: 20 UG, QD
     Route: 058
  4. FORTEO [Suspect]
     Active Substance: TERIPARATIDE
     Dosage: 20 UG, QD
     Route: 058
  5. FORTEO [Suspect]
     Active Substance: TERIPARATIDE
     Dosage: 20 UG, QD
     Route: 058

REACTIONS (15)
  - Gait disturbance [Recovered/Resolved]
  - Fall [Recovering/Resolving]
  - Arthritis [Recovering/Resolving]
  - Upper limb fracture [Unknown]
  - Pain in extremity [Unknown]
  - Humerus fracture [Recovering/Resolving]
  - Pain [Recovering/Resolving]
  - Intentional product misuse [Unknown]
  - Fracture [Unknown]
  - Alopecia [Unknown]
  - Decreased activity [Unknown]
  - Drug dose omission [Recovered/Resolved]
  - Bursitis [Unknown]
  - Arthralgia [Recovered/Resolved]
  - Drug ineffective [Unknown]

NARRATIVE: CASE EVENT DATE: 20110530
